FAERS Safety Report 8592294-6 (Version None)
Quarter: 2012Q3

REPORT INFORMATION
  Report Type: 
  Country: None (occurrence: None)
  Receive Date: 20120814
  Receipt Date: 20120809
  Transmission Date: 20120928
  Serious: No
  Sender: FDA-Public Use
  Company Number: US-BAYER-2012-081914

PATIENT

DRUGS (2)
  1. ALEVE (CAPLET) [Suspect]
     Indication: FACIAL PAIN
     Route: 048
  2. HYDRO S [Concomitant]

REACTIONS (1)
  - FACIAL PAIN [None]
